FAERS Safety Report 9684439 (Version 1)
Quarter: 2013Q4

REPORT INFORMATION
  Report Type: Spontaneous
  Country: US (occurrence: US)
  Receive Date: 20131112
  Receipt Date: 20131112
  Transmission Date: 20140711
  Serious: Yes (Death, Hospitalization)
  Sender: FDA-Public Use
  Company Number: US-CUBIST PHARMACEUTICAL, INC.-2012S1000926

PATIENT
  Sex: Male

DRUGS (3)
  1. CUBICIN [Suspect]
     Indication: STREPTOCOCCAL INFECTION
     Dosage: 6 MG/KG, QD
     Dates: start: 2012, end: 2012
  2. CUBICIN [Suspect]
     Dosage: 6 MG/KG, QD
     Dates: start: 2012, end: 2012
  3. ROCEPHIN [Concomitant]
     Indication: STREPTOCOCCAL INFECTION
     Dosage: UNK UNK, UNK

REACTIONS (1)
  - Eosinophilic pneumonia [Recovered/Resolved]
